FAERS Safety Report 14636235 (Version 10)
Quarter: 2020Q1

REPORT INFORMATION
  Report Type: Spontaneous
  Country: US (occurrence: US)
  Receive Date: 20180314
  Receipt Date: 20200205
  Transmission Date: 20200409
  Serious: Yes (Hospitalization)
  Sender: FDA-Public Use
  Company Number: US-ACTELION-A-NJ2018-169074

PATIENT
  Age: 32 Year
  Sex: Male

DRUGS (5)
  1. VELETRI [Suspect]
     Active Substance: EPOPROSTENOL
     Dosage: 40.5 NG/KG/MIN
     Route: 042
  2. VELETRI [Suspect]
     Active Substance: EPOPROSTENOL
     Indication: PULMONARY ARTERIAL HYPERTENSION
     Dosage: 45.5 NG
     Route: 042
  3. VELETRI [Suspect]
     Active Substance: EPOPROSTENOL
     Dosage: 11.5 NG/KG, PER MIN
     Route: 042
     Dates: start: 20180209
  4. VELETRI [Suspect]
     Active Substance: EPOPROSTENOL
     Dosage: 28.5 NG/KG, PER MIN
     Route: 042
     Dates: start: 20180209
  5. VELETRI [Suspect]
     Active Substance: EPOPROSTENOL
     Dosage: 39.5 NG/KG, PER MIN
     Route: 042
     Dates: start: 20180209

REACTIONS (10)
  - Hospitalisation [Unknown]
  - Dyspnoea [Unknown]
  - Infection [Not Recovered/Not Resolved]
  - Bone pain [Recovering/Resolving]
  - Product dose omission [Unknown]
  - Drug titration error [Unknown]
  - Adverse event [Unknown]
  - Sickle cell anaemia with crisis [Unknown]
  - Pulmonary arterial hypertension [Unknown]
  - Malaise [Unknown]

NARRATIVE: CASE EVENT DATE: 20180627
